FAERS Safety Report 6064903-7 (Version None)
Quarter: 2009Q1

REPORT INFORMATION
  Report Type: 
  Country: None (occurrence: None)
  Receive Date: 20090203
  Receipt Date: 20090203
  Transmission Date: 20090719
  Serious: No
  Sender: FDA-Public Use
  Company Number: None

PATIENT
  Age: 69 Year
  Sex: Female

DRUGS (13)
  1. BYETTA [Suspect]
     Indication: DIABETES MELLITUS
     Dosage: 10MCG SUBCUTANEOUS EACH MORNING (AND FIRST PEN IN SEPTEMBER OR OCTOBER)
     Route: 058
     Dates: start: 20090113
  2. BYETTA [Suspect]
     Indication: DIABETES MELLITUS
     Dosage: 10MCG SUBCUTANEOUS EACH MORNING (AND FIRST PEN IN SEPTEMBER OR OCTOBER)
     Route: 058
     Dates: start: 20090115
  3. GLUCOPHAGE [Concomitant]
  4. GLYNASE [Concomitant]
  5. NEXIUM [Concomitant]
  6. PAXIL [Concomitant]
  7. LORAZEPAM [Concomitant]
  8. TRAZODONE HCL [Concomitant]
  9. TRICOR [Concomitant]
  10. ATENOLOL [Concomitant]
  11. LIPITOR [Concomitant]
  12. AGGRENOX [Concomitant]
  13. SYNTHROID [Concomitant]

REACTIONS (1)
  - DRUG INEFFECTIVE [None]
